FAERS Safety Report 8413541-7 (Version None)
Quarter: 2012Q2

REPORT INFORMATION
  Report Type: 
  Country: None (occurrence: None)
  Receive Date: 20120605
  Receipt Date: 20120529
  Transmission Date: 20120825
  Serious: Yes (Other)
  Sender: FDA-Public Use
  Company Number: MX-GLAXOSMITHKLINE-A0979949A

PATIENT
  Sex: Male

DRUGS (3)
  1. ASCRIPTIN A/D [Concomitant]
     Indication: MULTIPLE MYELOMA
     Dosage: 1U PER DAY
     Dates: start: 20110301
  2. THALIDOMIDE [Concomitant]
     Indication: MULTIPLE MYELOMA
     Dosage: 1U PER DAY
     Dates: start: 20110401
  3. PAROXETINE HCL [Suspect]
     Indication: DEPRESSION
     Dosage: 20MG PER DAY
     Route: 048
     Dates: start: 20110401

REACTIONS (5)
  - IRRITABILITY [None]
  - MEMORY IMPAIRMENT [None]
  - HAEMOGLOBIN DECREASED [None]
  - AMNESIA [None]
  - DRUG INEFFECTIVE [None]
